FAERS Safety Report 6713021-0 (Version None)
Quarter: 2010Q2

REPORT INFORMATION
  Report Type: 
  Country: None (occurrence: None)
  Receive Date: 20100505
  Receipt Date: 20100505
  Transmission Date: 20101027
  Serious: No
  Sender: FDA-Public Use
  Company Number: None

PATIENT
  Age: 58 Year
  Sex: Male

DRUGS (2)
  1. VARENICLINE [Suspect]
     Indication: DEPRESSION
     Dosage: 1 MG EVERY DAY PO
     Route: 048
     Dates: start: 20091123, end: 20091222
  2. VARENICLINE [Suspect]
     Indication: SMOKING CESSATION THERAPY
     Dosage: 1 MG EVERY DAY PO
     Route: 048
     Dates: start: 20091123, end: 20091222

REACTIONS (3)
  - DEPRESSION [None]
  - SUICIDAL IDEATION [None]
  - THINKING ABNORMAL [None]
